FAERS Safety Report 4658564-9 (Version None)
Quarter: 2005Q2

REPORT INFORMATION
  Report Type: 
  Country: None (occurrence: None)
  Receive Date: 20050511
  Receipt Date: 20050427
  Transmission Date: 20051028
  Serious: Yes (Hospitalization)
  Sender: FDA-Public Use
  Company Number: FI-BOEHRINGER INGELHEIM PHARMACEUTICALS, INC.-2005-SW-00191SF

PATIENT
  Age: 78 Year
  Sex: Male

DRUGS (12)
  1. ATRODUAL 0.5 + 0. 2 MG/DOSE [Suspect]
     Indication: ASTHMA
     Route: 055
     Dates: start: 20050331, end: 20050331
  2. PULMICORT [Concomitant]
     Route: 055
  3. ENOXAPARIN SODIUM [Concomitant]
     Route: 058
  4. MADOPAR DEPOT [Concomitant]
     Dosage: STRENGTH: MADOPAR DEPOT 100/25 (LEVODOPA 100MG + BENSERAZID 25MG); DAILY DOSE: MADOPAR DEPOT 100/25
  5. ELDEPRYL [Concomitant]
  6. COMTESS [Concomitant]
  7. SINEMET [Concomitant]
     Dosage: STRENGTH: SINEMET (LEVODOPA 100MG + KARBIDOPA 25MG); DAILY DOSE: SINEMET (LEVODOPA 100MG + KARBIDOPA
  8. PROSCAR [Concomitant]
  9. PARA-TABS [Concomitant]
  10. NEXIUM [Concomitant]
  11. FURESIS [Concomitant]
  12. TAMIFLU [Concomitant]

REACTIONS (5)
  - ASTHENIA [None]
  - PALLOR [None]
  - SPEECH DISORDER [None]
  - SYNCOPE [None]
  - TRANSIENT ISCHAEMIC ATTACK [None]
